FAERS Safety Report 5194252-0 (Version None)
Quarter: 2006Q4

REPORT INFORMATION
  Report Type: 
  Country: None (occurrence: None)
  Receive Date: 20061228
  Receipt Date: 20061128
  Transmission Date: 20070319
  Serious: Yes (Hospitalization)
  Sender: FDA-Public Use
  Company Number: US-BOEHRINGER INGELHEIM PHARMACEUTICALS, INC.-2006-BP-13837BP

PATIENT
  Sex: Female

DRUGS (11)
  1. SPIRIVA [Suspect]
     Indication: CHRONIC OBSTRUCTIVE PULMONARY DISEASE
     Route: 055
     Dates: start: 20061116
  2. SPIRIVA [Suspect]
     Indication: ASTHMA
  3. SYNTHROID [Concomitant]
     Indication: HYPOTHYROIDISM
  4. PREDNISONE TAB [Concomitant]
     Indication: ASTHMA
  5. PREDNISONE TAB [Concomitant]
     Indication: CHRONIC OBSTRUCTIVE PULMONARY DISEASE
  6. VASOTEC [Concomitant]
     Indication: MITRAL VALVE PROLAPSE
  7. LIPITOR [Concomitant]
     Indication: BLOOD CHOLESTEROL INCREASED
  8. PLAVIX [Concomitant]
     Indication: MYOCARDIAL INFARCTION
  9. ASMANEX TWISTHALER [Concomitant]
     Indication: CHRONIC OBSTRUCTIVE PULMONARY DISEASE
  10. ASMANEX TWISTHALER [Concomitant]
     Indication: ASTHMA
  11. NEXIUM [Concomitant]
     Indication: GASTROOESOPHAGEAL REFLUX DISEASE

REACTIONS (5)
  - CORONARY ARTERY OCCLUSION [None]
  - MYOCARDIAL INFARCTION [None]
  - POLLAKIURIA [None]
  - URETHRAL SPASM [None]
  - URINARY TRACT INFECTION [None]
